FAERS Safety Report 5466216-0 (Version None)
Quarter: 2007Q3

REPORT INFORMATION
  Report Type: 
  Country: None (occurrence: None)
  Receive Date: 20070919
  Receipt Date: 20070903
  Transmission Date: 20080115
  Serious: Yes (Hospitalization)
  Sender: FDA-Public Use
  Company Number: DSA_30526_2007

PATIENT
  Sex: Male

DRUGS (1)
  1. LORAZEPAM [Suspect]
     Dosage: ORAL
     Route: 048
     Dates: start: 20070831, end: 20070831

REACTIONS (3)
  - POISONING [None]
  - SOMNOLENCE [None]
  - VICTIM OF CRIME [None]
